FAERS Safety Report 4460461-9 (Version None)
Quarter: 2004Q3

REPORT INFORMATION
  Report Type: 
  Country: None (occurrence: None)
  Receive Date: 20040928
  Receipt Date: 20040812
  Transmission Date: 20050211
  Serious: No
  Sender: FDA-Public Use
  Company Number: US-GLAXOSMITHKLINE-A0521990A

PATIENT
  Age: 71 Year
  Sex: Female

DRUGS (12)
  1. SEREVENT [Suspect]
     Dosage: 1PUFF TWICE PER DAY
     Route: 055
  2. ALBUTEROL [Concomitant]
  3. ATROVENT [Concomitant]
  4. MIACALCIN [Concomitant]
  5. NEXIUM [Concomitant]
  6. DIOVAN [Concomitant]
  7. SYNTHROID [Concomitant]
  8. NIASPAN [Concomitant]
  9. WELCHOL [Concomitant]
  10. ASPIRIN [Concomitant]
  11. FLOVENT [Concomitant]
  12. COMBIVENT [Concomitant]

REACTIONS (3)
  - DRUG INEFFECTIVE [None]
  - ERYTHEMA [None]
  - FATIGUE [None]
